FAERS Safety Report 9366487 (Version 1)
Quarter: 2013Q2

REPORT INFORMATION
  Report Type: Spontaneous
  Country: JP (occurrence: JP)
  Receive Date: 20130625
  Receipt Date: 20130625
  Transmission Date: 20140414
  Serious: No
  Sender: FDA-Public Use
  Company Number: JP-OTSUKA-US-2012-11225

PATIENT
  Age: 27 Year
  Sex: Male

DRUGS (3)
  1. CILOSTAZOL [Suspect]
     Dosage: 100 MG MILLIGRAM(S), DAILY DOSE
     Route: 048
  2. HEPARIN [Concomitant]
     Dosage: 5000 IU, UNK
     Route: 040
  3. ASPIRIN [Concomitant]
     Indication: PREMEDICATION
     Dosage: 100 MG MILLIGRAM(S), DAILY DOSE
     Route: 048

REACTIONS (2)
  - No adverse event [Unknown]
  - No adverse event [Unknown]
